FAERS Safety Report 6858718-7 (Version None)
Quarter: 2010Q3

REPORT INFORMATION
  Report Type: 
  Country: None (occurrence: None)
  Receive Date: 20100719
  Receipt Date: 20080211
  Transmission Date: 20110219
  Serious: No
  Sender: FDA-Public Use
  Company Number: US-PFIZER INC-2008015604

PATIENT
  Sex: Female
  Weight: 122.72 kg

DRUGS (7)
  1. CHANTIX [Suspect]
     Indication: SMOKING CESSATION THERAPY
     Dates: start: 20071016
  2. EFFEXOR [Suspect]
  3. INSULIN [Concomitant]
  4. METFORMIN HCL [Concomitant]
  5. VYTORIN [Concomitant]
  6. LEVOTHYROXINE SODIUM [Concomitant]
     Indication: THYROID DISORDER
  7. BLACK COHOSH [Concomitant]
     Indication: MENOPAUSE

REACTIONS (3)
  - SOMNOLENCE [None]
  - THINKING ABNORMAL [None]
  - WEIGHT DECREASED [None]
